FAERS Safety Report 21159525 (Version 1)
Quarter: 2022Q3

REPORT INFORMATION
  Report Type: Spontaneous
  Country: US (occurrence: US)
  Receive Date: 20220802
  Receipt Date: 20220802
  Transmission Date: 20221027
  Serious: No
  Sender: FDA-Public Use
  Company Number: US-BAUSCH-BL-2022-019053

PATIENT
  Age: 75 Year
  Sex: Female

DRUGS (4)
  1. PROLENSA [Suspect]
     Active Substance: BROMFENAC SODIUM
     Indication: Postoperative care
     Dosage: 15 MINUTE ELAPSE BETWEEN EACH DROP
     Route: 047
     Dates: start: 20220713, end: 20220715
  2. BESIVANCE [Suspect]
     Active Substance: BESIFLOXACIN
     Indication: Postoperative care
     Dosage: 15 MINUTE ELAPSE BETWEEN EACH DROP
     Route: 047
     Dates: start: 20220713, end: 20220715
  3. PREDNISOLONE SODIUM PHOSPHATE [Suspect]
     Active Substance: PREDNISOLONE SODIUM PHOSPHATE
     Indication: Postoperative care
     Dosage: 15 MINUTE ELAPSE BETWEEN EACH DROP
     Route: 047
     Dates: start: 20220713, end: 20220715
  4. NOVOLIN 70/30 [Concomitant]
     Active Substance: INSULIN HUMAN
     Indication: Product used for unknown indication

REACTIONS (2)
  - Pharyngeal swelling [Recovered/Resolved]
  - Pulmonary congestion [Recovered/Resolved]

NARRATIVE: CASE EVENT DATE: 20220715
